FAERS Safety Report 7649845-5 (Version None)
Quarter: 2011Q3

REPORT INFORMATION
  Report Type: 
  Country: None (occurrence: None)
  Receive Date: 20110727
  Receipt Date: 20110712
  Transmission Date: 20111222
  Serious: Yes (Life-Threatening, Hospitalization, Disabling, Other)
  Sender: FDA-Public Use
  Company Number: 2011P1006504

PATIENT
  Age: 62 Year
  Sex: Male
  Weight: 112.6 kg

DRUGS (23)
  1. ZETIA [Concomitant]
  2. ZOCOR [Concomitant]
  3. WARFARIN SODIUM [Suspect]
     Indication: ANGIOPATHY
     Dosage: 5 MG;QD;PO
     Route: 048
     Dates: start: 20110513, end: 20110515
  4. ASPART INSULIN [Concomitant]
  5. LEVALBUTEROL HCL [Concomitant]
  6. EZETIMIBE 10MG/SYMVASTATIN 80 MG [Concomitant]
  7. THIAMINE [Concomitant]
  8. OMEPRAZOLE [Concomitant]
  9. VICODIN [Concomitant]
  10. METOPROLOL TARTRATE [Concomitant]
  11. IPRATROPIUM BROMIDE [Concomitant]
  12. METHYLPREDNISOLONE ACETATE [Concomitant]
  13. FOLIC ACID [Concomitant]
  14. ATENOLOL [Concomitant]
  15. IBUPROFEN [Concomitant]
  16. LISINOPRIL [Concomitant]
  17. MULTI-VITAMIN [Concomitant]
  18. HEPARIN [Concomitant]
  19. GLIPIZIDE [Concomitant]
  20. ASPIRIN [Concomitant]
  21. NPH INSULIN [Concomitant]
  22. PLAVIX [Concomitant]
  23. METFORMIN HCL [Concomitant]

REACTIONS (16)
  - INTERNATIONAL NORMALISED RATIO INCREASED [None]
  - THROMBOSIS [None]
  - CARDIO-RESPIRATORY ARREST [None]
  - HYPOPHAGIA [None]
  - HAEMOGLOBIN DECREASED [None]
  - WOUND NECROSIS [None]
  - GASTROOESOPHAGEAL REFLUX DISEASE [None]
  - HAEMATOCRIT DECREASED [None]
  - RED CELL DISTRIBUTION WIDTH INCREASED [None]
  - OPEN WOUND [None]
  - INTERNATIONAL NORMALISED RATIO DECREASED [None]
  - DIALYSIS [None]
  - RED BLOOD CELL COUNT DECREASED [None]
  - DIABETES MELLITUS INADEQUATE CONTROL [None]
  - RENAL FAILURE ACUTE [None]
  - HAEMATOMA [None]
